FAERS Safety Report 21690811 (Version 1)
Quarter: 2022Q4

REPORT INFORMATION
  Report Type: Other
  Country: CA (occurrence: CA)
  Receive Date: 20221207
  Receipt Date: 20221207
  Transmission Date: 20230113
  Serious: Yes (Other)
  Sender: FDA-Public Use
  Company Number: CA-HLS-202107231

PATIENT
  Age: 28 Year
  Sex: Female

DRUGS (2)
  1. CLOZAPINE [Suspect]
     Active Substance: CLOZAPINE
     Indication: Schizophrenia
     Route: 065
  2. PALIPERIDONE [Concomitant]
     Active Substance: PALIPERIDONE
     Dosage: 150 MG (INTRAMUSCULAR) EVERY 4 WEEKS
     Route: 065

REACTIONS (4)
  - Eosinophilia [Unknown]
  - Neutrophil count increased [Recovered/Resolved]
  - Hallucination, auditory [Recovering/Resolving]
  - White blood cell count increased [Recovered/Resolved]
